FAERS Safety Report 11115626 (Version 1)
Quarter: 2015Q2

REPORT INFORMATION
  Report Type: Spontaneous
  Country: US (occurrence: None)
  Receive Date: 20150513
  Receipt Date: 20150513
  Transmission Date: 20150821
  Serious: Yes (Hospitalization)
  Sender: FDA-Public Use
  Company Number: US-H14001-15-00703

PATIENT
  Age: 74 Year
  Sex: Male

DRUGS (2)
  1. INFUMORPH [Suspect]
     Active Substance: MORPHINE SULFATE
     Indication: SPINAL PAIN
     Dosage: 7.989 MG (30 MILLIGRAM/MILLILITERS), INTRATHECAL
     Route: 037
  2. BUPIVACAINE [Suspect]
     Active Substance: BUPIVACAINE
     Indication: PRODUCT USED FOR UNKNOWN INDICATION
     Dosage: 7.989 MG (30 MILLIGRAM/MILLILITERS), INTRATHECAL
     Route: 037

REACTIONS (5)
  - Blood creatinine increased [None]
  - Metabolic disorder [None]
  - Urinary tract infection [None]
  - Renal impairment [None]
  - Mental status changes [None]
